FAERS Safety Report 11215898 (Version 2)
Quarter: 2015Q3

REPORT INFORMATION
  Report Type: Spontaneous
  Country: ES (occurrence: ES)
  Receive Date: 20150622
  Receipt Date: 20150714
  Transmission Date: 20151125
  Serious: Yes (Other)
  Sender: FDA-Public Use
  Company Number: ES-MDCO-15-00324

PATIENT
  Age: 78 Year
  Sex: Male
  Weight: 77 kg

DRUGS (1)
  1. ANGIOX [Suspect]
     Active Substance: BIVALIRUDIN
     Indication: CORONARY ANGIOPLASTY
     Dosage: NOT REPORTED
     Route: 042
     Dates: start: 20150527, end: 20150527

REACTIONS (3)
  - Hypotension [Recovered/Resolved]
  - Bradycardia [Recovered/Resolved]
  - Disorientation [Recovered/Resolved]

NARRATIVE: CASE EVENT DATE: 20150527
